FAERS Safety Report 6591187-3 (Version None)
Quarter: 2010Q1

REPORT INFORMATION
  Report Type: 
  Country: None (occurrence: None)
  Receive Date: 20100212
  Receipt Date: 20100126
  Transmission Date: 20100710
  Serious: Yes (Hospitalization, Other)
  Sender: FDA-Public Use
  Company Number: A-NJ2009-26722

PATIENT
  Age: 17 Year
  Sex: Female

DRUGS (4)
  1. TRACLEER [Suspect]
     Indication: PULMONARY ARTERIAL HYPERTENSION
     Dosage: 125 MG, BID, ORAL,  62.5 MG, BID, ORAL
     Route: 048
     Dates: end: 20090201
  2. TRACLEER [Suspect]
     Indication: PULMONARY ARTERIAL HYPERTENSION
     Dosage: 125 MG, BID, ORAL,  62.5 MG, BID, ORAL
     Route: 048
     Dates: start: 20090301, end: 20090301
  3. TRACLEER [Suspect]
     Indication: PULMONARY ARTERIAL HYPERTENSION
     Dosage: 125 MG, BID, ORAL,  62.5 MG, BID, ORAL
     Route: 048
     Dates: start: 20030218
  4. SILDENAFIL CITRATE [Concomitant]

REACTIONS (5)
  - AXONAL NEUROPATHY [None]
  - CELLULITIS [None]
  - HEPATOTOXICITY [None]
  - HIV INFECTION [None]
  - SEPSIS [None]
